FAERS Safety Report 7895702-9 (Version None)
Quarter: 2011Q4

REPORT INFORMATION
  Report Type: 
  Country: None (occurrence: None)
  Receive Date: 20111104
  Receipt Date: 20111104
  Transmission Date: 20120403
  Serious: No
  Sender: FDA-Public Use
  Company Number: None

PATIENT
  Sex: Male
  Weight: 82.7 kg

DRUGS (3)
  1. MERCAPTOPURINE [Suspect]
     Dosage: 1475 MG
  2. DEXAMETHASONE [Suspect]
     Dosage: 100 MG
  3. METHOTREXATE [Suspect]
     Dosage: 65 MG

REACTIONS (3)
  - HAEMOGLOBIN DECREASED [None]
  - PLATELET COUNT DECREASED [None]
  - NEUTROPHIL COUNT DECREASED [None]
